FAERS Safety Report 4737881-8 (Version None)
Quarter: 2005Q3

REPORT INFORMATION
  Report Type: 
  Country: None (occurrence: None)
  Receive Date: 20050809
  Receipt Date: 20050801
  Transmission Date: 20060218
  Serious: Yes (Other)
  Sender: FDA-Public Use
  Company Number: DE-JNJFOC-20050800075

PATIENT
  Age: 53 Year
  Sex: Female

DRUGS (6)
  1. REMICADE [Suspect]
     Route: 042
  2. DICLOFENAC [Suspect]
     Indication: DRUG USE FOR UNKNOWN INDICATION
     Route: 065
  3. METHOTREXATE [Concomitant]
     Route: 065
  4. NEXIUM [Concomitant]
     Route: 065
  5. AMLODIPINE [Concomitant]
     Route: 065
  6. CITALOPRAM [Concomitant]
     Route: 065

REACTIONS (4)
  - ANGIONEUROTIC OEDEMA [None]
  - ASTHMA [None]
  - HYPERSENSITIVITY [None]
  - URTICARIA [None]
